FAERS Safety Report 7732455-9 (Version None)
Quarter: 2011Q3

REPORT INFORMATION
  Report Type: 
  Country: None (occurrence: None)
  Receive Date: 20110906
  Receipt Date: 20110823
  Transmission Date: 20111222
  Serious: No
  Sender: FDA-Public Use
  Company Number: CA-ELI_LILLY_AND_COMPANY-CA201108006943

PATIENT
  Sex: Male

DRUGS (16)
  1. ZYPREXA ZYDIS [Suspect]
     Indication: SCHIZOPHRENIA
     Dosage: 5 MG, PRN
  2. PROCYCLIDINE HYDROCHLORIDE 2MG TAB [Concomitant]
  3. LOXAPINE HCL [Concomitant]
  4. RAMIPRIL [Concomitant]
  5. ZYPREXA [Suspect]
     Indication: SCHIZOPHRENIA
     Dosage: 25 MG, QD
     Dates: start: 20010703
  6. ZYPREXA [Suspect]
     Dosage: 2.5 MG, PRN
  7. RISPERIDONE [Concomitant]
  8. BENZTROPINE MESYLATE [Concomitant]
  9. CELEXA [Concomitant]
  10. ZYPREXA [Suspect]
     Dosage: 5 MG, PRN
  11. LORAZEPAM [Concomitant]
  12. CLOZAPINE [Concomitant]
  13. TRIFLUOPERAZINE HCL [Concomitant]
  14. ZYPREXA [Suspect]
     Dosage: 7.5 MG, EACH EVENING
  15. ZYPREXA [Suspect]
     Dosage: 10 MG, EACH EVENING
  16. LIPITOR [Concomitant]

REACTIONS (5)
  - TYPE 2 DIABETES MELLITUS [None]
  - PROSTATITIS [None]
  - WHITE BLOOD CELL COUNT INCREASED [None]
  - CHEST PAIN [None]
  - OVERDOSE [None]
